FAERS Safety Report 11916652 (Version 1)
Quarter: 2016Q1

REPORT INFORMATION
  Report Type: Spontaneous
  Country: US (occurrence: None)
  Receive Date: 20160113
  Receipt Date: 20160113
  Transmission Date: 20160526
  Serious: No
  Sender: FDA-Public Use
  Company Number: None

PATIENT
  Age: 47 Year
  Sex: Male
  Weight: 57.61 kg

DRUGS (7)
  1. ALEVE [Concomitant]
     Active Substance: NAPROXEN SODIUM
  2. VITAMIN B [Concomitant]
     Active Substance: VITAMIN B
  3. PROBIOTICS [Concomitant]
     Active Substance: PROBIOTICS NOS
  4. CINNAMON CAPSULES [Concomitant]
  5. ASPARIN [Concomitant]
  6. ZIPRASIDONE 80 MG 68180-334-07 [Suspect]
     Active Substance: ZIPRASIDONE HYDROCHLORIDE
     Indication: SCHIZOPHRENIA
     Route: 048
     Dates: start: 20061201, end: 20160112
  7. VITAMIN D [Concomitant]
     Active Substance: CHOLECALCIFEROL

REACTIONS (4)
  - Urinary retention [None]
  - Suicidal ideation [None]
  - Oculogyric crisis [None]
  - Homicidal ideation [None]

NARRATIVE: CASE EVENT DATE: 20151225
